FAERS Safety Report 7620261-5 (Version None)
Quarter: 2011Q3

REPORT INFORMATION
  Report Type: 
  Country: None (occurrence: None)
  Receive Date: 20110719
  Receipt Date: 20110707
  Transmission Date: 20111222
  Serious: Yes (Hospitalization)
  Sender: FDA-Public Use
  Company Number: PHHO2007US19265

PATIENT
  Sex: Female
  Weight: 71 kg

DRUGS (5)
  1. VALTREX [Concomitant]
  2. PREDNISONE [Concomitant]
  3. NEORAL [Concomitant]
  4. ZORTRESS [Suspect]
     Indication: HEART TRANSPLANT
     Dosage: 1.5 MG, DAILY
     Route: 048
     Dates: start: 20070826, end: 20071117
  5. SEPTRA [Concomitant]

REACTIONS (9)
  - HYPERTRIGLYCERIDAEMIA [None]
  - DYSPNOEA [None]
  - ABDOMINAL PAIN UPPER [None]
  - HEART TRANSPLANT REJECTION [None]
  - DIZZINESS [None]
  - VOMITING [None]
  - GASTRITIS [None]
  - NAUSEA [None]
  - DYSPHAGIA [None]
